FAERS Safety Report 23325596 (Version 10)
Quarter: 2025Q1

REPORT INFORMATION
  Report Type: Spontaneous
  Country: BR (occurrence: BR)
  Receive Date: 20231221
  Receipt Date: 20250207
  Transmission Date: 20250409
  Serious: Yes (Disabling, Other)
  Sender: JOHNSON AND JOHNSON
  Company Number: BR-JNJFOC-20231239706

PATIENT
  Age: 66 Year
  Sex: Female
  Weight: 69 kg

DRUGS (14)
  1. HALDOL [Suspect]
     Active Substance: HALOPERIDOL
     Indication: Epilepsy
     Route: 048
  2. HALDOL [Suspect]
     Active Substance: HALOPERIDOL
     Route: 048
  3. HALDOL [Suspect]
     Active Substance: HALOPERIDOL
     Route: 048
  4. HALDOL [Suspect]
     Active Substance: HALOPERIDOL
     Route: 048
  5. HALDOL [Suspect]
     Active Substance: HALOPERIDOL
     Dosage: DOSE: HALF TABLE IN MORNING AND 1 AT NIGHT
     Route: 048
  6. HALDOL [Suspect]
     Active Substance: HALOPERIDOL
     Dosage: ANOTHER POINT 2 TABLETS IN THE MORNING
     Route: 048
  7. HALDOL [Suspect]
     Active Substance: HALOPERIDOL
     Dosage: BUT AT SOME POINTS SHE SAID IT WAS 1 AND A HALF  TABLETS IN THE MORNING
     Route: 048
  8. HALDOL [Suspect]
     Active Substance: HALOPERIDOL
     Route: 048
     Dates: start: 20250115
  9. EZETIMIBE [Concomitant]
     Active Substance: EZETIMIBE
  10. PHENOBARBITAL [Concomitant]
     Active Substance: PHENOBARBITAL
  11. DIAZEPAM [Concomitant]
     Active Substance: DIAZEPAM
  12. ANASTROZOLE [Concomitant]
     Active Substance: ANASTROZOLE
  13. TRAUM RETARD [Concomitant]
  14. TEGRETOL [Concomitant]
     Active Substance: CARBAMAZEPINE

REACTIONS (62)
  - Choking [Unknown]
  - Suicidal ideation [Unknown]
  - Breast cancer [Unknown]
  - Epilepsy [Unknown]
  - Gait inability [Not Recovered/Not Resolved]
  - Dysphonia [Unknown]
  - Drug dependence [Unknown]
  - Urinary retention [Unknown]
  - Peripheral paralysis [Unknown]
  - Tardive dyskinesia [Unknown]
  - Inappropriate schedule of product administration [Unknown]
  - Myocardial infarction [Unknown]
  - Thyroid disorder [Unknown]
  - Cardiac disorder [Unknown]
  - Dizziness [Not Recovered/Not Resolved]
  - Feeling drunk [Not Recovered/Not Resolved]
  - Fall [Not Recovered/Not Resolved]
  - Nausea [Not Recovered/Not Resolved]
  - Vomiting [Unknown]
  - Dry skin [Not Recovered/Not Resolved]
  - Skin exfoliation [Not Recovered/Not Resolved]
  - Skin fissures [Not Recovered/Not Resolved]
  - Motor dysfunction [Not Recovered/Not Resolved]
  - Speech disorder [Not Recovered/Not Resolved]
  - Dysgraphia [Not Recovered/Not Resolved]
  - Visual impairment [Not Recovered/Not Resolved]
  - Confusional state [Not Recovered/Not Resolved]
  - Slow speech [Not Recovered/Not Resolved]
  - Strabismus [Unknown]
  - Decreased appetite [Not Recovered/Not Resolved]
  - Amnesia [Unknown]
  - Pruritus [Not Recovered/Not Resolved]
  - Vision blurred [Not Recovered/Not Resolved]
  - Fatigue [Unknown]
  - Dysphagia [Not Recovered/Not Resolved]
  - Weight increased [Unknown]
  - Loss of personal independence in daily activities [Not Recovered/Not Resolved]
  - Adverse drug reaction [Unknown]
  - Sedation [Not Recovered/Not Resolved]
  - Feeling abnormal [Not Recovered/Not Resolved]
  - Movement disorder [Unknown]
  - Sensory disturbance [Unknown]
  - Hypertension [Not Recovered/Not Resolved]
  - Fear of death [Not Recovered/Not Resolved]
  - Nervousness [Unknown]
  - Crying [Unknown]
  - Incorrect dose administered [Not Recovered/Not Resolved]
  - Wrong technique in product usage process [Unknown]
  - Off label use [Unknown]
  - Anaemia [Unknown]
  - Respiratory disorder [Not Recovered/Not Resolved]
  - Somnolence [Not Recovered/Not Resolved]
  - Dyspepsia [Not Recovered/Not Resolved]
  - Epistaxis [Not Recovered/Not Resolved]
  - Tachycardia [Not Recovered/Not Resolved]
  - Movement disorder [Not Recovered/Not Resolved]
  - Skin haemorrhage [Not Recovered/Not Resolved]
  - Constipation [Not Recovered/Not Resolved]
  - Muscular weakness [Not Recovered/Not Resolved]
  - Polyuria [Unknown]
  - Urinary tract infection [Unknown]
  - Wound [Unknown]
